FAERS Safety Report 15505334 (Version 1)
Quarter: 2018Q4

REPORT INFORMATION
  Report Type: Spontaneous
  Country: DK (occurrence: DK)
  Receive Date: 20181016
  Receipt Date: 20181016
  Transmission Date: 20190205
  Serious: Yes (Hospitalization)
  Sender: FDA-Public Use
  Company Number: DK-009507513-1810DNK004818

PATIENT
  Age: 65 Year
  Sex: Male
  Weight: 98 kg

DRUGS (17)
  1. AMLODIPINE [Concomitant]
     Active Substance: AMLODIPINE BESYLATE
     Indication: HYPERTENSION
     Dosage: 10 MG, QD; STYRKE: 10 MG
     Route: 048
  2. METFORMIN ACTAVIS [Concomitant]
     Active Substance: METFORMIN HYDROCHLORIDE
     Indication: DIABETES MELLITUS
     Dosage: 2000 MG, QD; STYRKE: 500 MG
     Route: 048
  3. ALENDRONATE TEVA [Concomitant]
     Active Substance: ALENDRONATE SODIUM
     Indication: OSTEOPOROSIS
     Dosage: 70 MG, QW, STYRKE: 70 MG
     Route: 048
     Dates: start: 20180208
  4. ABASAGLAR [Concomitant]
     Active Substance: INSULIN GLARGINE
     Indication: DIABETES MELLITUS
     Dosage: 54 IU, QD, STYRKE: 100 IE/ML
     Dates: start: 20171113
  5. MAGNESIA [Concomitant]
     Active Substance: MAGNESIUM HYDROXIDE
     Indication: CONSTIPATION
     Dosage: 1000 MG, QD; STYRKE: 500 MG
     Route: 048
     Dates: start: 20170320
  6. PREDNISOLON DAK [Concomitant]
     Active Substance: PREDNISOLONE
     Indication: ADRENOCORTICAL STEROID THERAPY
     Dosage: DOSIS: DOSERING EFTER AFTALE. STYRKE: 5-25 MG.
     Route: 048
     Dates: start: 20170811
  7. UNIKALK BASIC [Concomitant]
     Indication: MINERAL SUPPLEMENTATION
     Dosage: 2 DF, QD; STYRKE: UKENDT
     Route: 048
     Dates: start: 20131107
  8. JARDIANCE [Concomitant]
     Active Substance: EMPAGLIFLOZIN
     Indication: DIABETES MELLITUS
     Dosage: 10 MG, QD; STYRKE: 10 MG
     Route: 048
     Dates: start: 20171010
  9. MORPHINE [Concomitant]
     Active Substance: MORPHINE
     Indication: PAIN
     Dosage: DOSIS: SKRIFTLIG DOSERING ANVISNING. STYRKE: 10 MG
     Route: 048
     Dates: start: 20170621
  10. HJERDYL [Concomitant]
     Active Substance: ASPIRIN
     Indication: ISCHAEMIC HEART DISEASE PROPHYLAXIS
     Dosage: 75 MG, QD; STYRKE: 75 MG
     Route: 048
  11. KEYTRUDA [Suspect]
     Active Substance: PEMBROLIZUMAB
     Indication: NON-SMALL CELL LUNG CANCER METASTATIC
     Dosage: 195 MG, Q3W; STYRKE: 195 MG
     Route: 042
     Dates: start: 20170623, end: 20180223
  12. PANTOPRAZOLE [Concomitant]
     Active Substance: PANTOPRAZOLE
     Indication: PROPHYLAXIS AGAINST GASTROINTESTINAL ULCER
     Dosage: 40 MG, QD; STYRKE: 40 MG
     Route: 048
     Dates: start: 20170804
  13. INSUMAN RAPID [Concomitant]
     Active Substance: INSULIN HUMAN
     Indication: DIABETES MELLITUS
     Dosage: 16 IU, PRN; STYRKE: 100 IE/ML ; AS NECESSARY
     Dates: start: 20180215
  14. METOPROLOLSUCCINAT HEXAL [Concomitant]
     Active Substance: METOPROLOL SUCCINATE
     Indication: HYPERTENSION
     Dosage: 50 MG, QD; STYRKE: 50 MG
     Route: 048
     Dates: start: 20130920
  15. CORODIL COMP [Concomitant]
     Active Substance: ENALAPRIL MALEATE\HYDROCHLOROTHIAZIDE
     Indication: HYPERTENSION
     Dosage: 1 DF, QD; STYRKE: 20 + 12,5 MG.
     Route: 048
  16. NITROGLYCERIN. [Concomitant]
     Active Substance: NITROGLYCERIN
     Indication: ANGINA PECTORIS
     Dosage: DOSIS: 1 TABLET UNDER TUNGEN. STYRKE: UKENDT.
     Route: 048
     Dates: start: 20120112
  17. ATORVASTATIN ACTAVIS [Concomitant]
     Active Substance: ATORVASTATIN
     Indication: HYPERCHOLESTEROLAEMIA
     Dosage: 80 MG, QD; STYRKE: 80 MG
     Route: 048
     Dates: start: 20171010

REACTIONS (4)
  - Hypercholesterolaemia [Recovered/Resolved]
  - Hepatitis [Recovered/Resolved]
  - Alanine aminotransferase increased [Recovered/Resolved]
  - Hypertriglyceridaemia [Recovered/Resolved]

NARRATIVE: CASE EVENT DATE: 201802
